FAERS Safety Report 20639274 (Version 1)
Quarter: 2022Q1

REPORT INFORMATION
  Report Type: Spontaneous
  Country: NO (occurrence: NO)
  Receive Date: 20220326
  Receipt Date: 20220326
  Transmission Date: 20220423
  Serious: Yes (Other)
  Sender: FDA-Public Use
  Company Number: NO-ASPEN-GLO2022NO001139

PATIENT
  Age: 7 Decade
  Sex: Male

DRUGS (5)
  1. HUMAN IMMUNOGLOBULIN G [Suspect]
     Active Substance: HUMAN IMMUNOGLOBULIN G
     Indication: VEXAS syndrome
     Dosage: 2 GRAM PER KILOGRAM, Q4WEEKS
     Route: 042
  2. AZATHIOPRINE [Suspect]
     Active Substance: AZATHIOPRINE
     Indication: VEXAS syndrome
     Dosage: 200 DOSAGE FORM
     Route: 065
  3. MYCOPHENOLATE MOFETIL [Suspect]
     Active Substance: MYCOPHENOLATE MOFETIL
     Indication: VEXAS syndrome
     Dosage: 1 DOSAGE FORM
     Route: 065
  4. CYCLOSPORINE [Suspect]
     Active Substance: CYCLOSPORINE
     Indication: VEXAS syndrome
     Dosage: 400 DOSAGE FORM
     Route: 065
  5. PREDNISONE [Concomitant]
     Active Substance: PREDNISONE
     Indication: VEXAS syndrome
     Dosage: UNK
     Route: 065

REACTIONS (2)
  - Drug ineffective for unapproved indication [Unknown]
  - Off label use [Unknown]
